FAERS Safety Report 11316801 (Version 1)
Quarter: 2015Q3

REPORT INFORMATION
  Report Type: Spontaneous
  Country: US (occurrence: US)
  Receive Date: 20150728
  Receipt Date: 20150728
  Transmission Date: 20151125
  Serious: No
  Sender: FDA-Public Use
  Company Number: US-AMGEN-USASP2015072147

PATIENT
  Age: 51 Year
  Sex: Female

DRUGS (1)
  1. ENBREL [Suspect]
     Active Substance: ETANERCEPT
     Indication: RHEUMATOID ARTHRITIS
     Dosage: 50 MG, QWK
     Route: 065
     Dates: start: 20150630, end: 20150714

REACTIONS (6)
  - Oropharyngeal pain [Unknown]
  - Rash [Unknown]
  - Urticaria [Unknown]
  - Diarrhoea [Unknown]
  - Unevaluable event [Unknown]
  - Pruritus [Unknown]

NARRATIVE: CASE EVENT DATE: 20150715
